FAERS Safety Report 7427167-5 (Version None)
Quarter: 2011Q2

REPORT INFORMATION
  Report Type: 
  Country: None (occurrence: None)
  Receive Date: 20110420
  Receipt Date: 20110413
  Transmission Date: 20111010
  Serious: Yes (Hospitalization)
  Sender: FDA-Public Use
  Company Number: US-B.I. PHARMACEUTICALS,INC./RIDGEFIELD-2011-BP-02621BP

PATIENT
  Age: 80 Year
  Sex: Female

DRUGS (10)
  1. ZOLOFT [Concomitant]
     Dosage: 50 MG
  2. FRUIT/VEGGIE [Concomitant]
  3. PRADAXA [Suspect]
     Indication: ATRIAL FIBRILLATION
     Dosage: 300 MG
     Route: 048
     Dates: start: 20110126, end: 20110203
  4. PROTONIX [Concomitant]
     Dosage: 80 MG
  5. TYLENOL PM [Concomitant]
  6. CRANBERRY [Concomitant]
     Dosage: 560 MG
  7. BYSTOLIC [Concomitant]
     Dosage: 1.25 MG
  8. CALCIUM -D3 [Concomitant]
  9. FOLIC ACID [Concomitant]
  10. LOVAZA [Concomitant]

REACTIONS (2)
  - HAEMOGLOBIN DECREASED [None]
  - HAEMATOCHEZIA [None]
